FAERS Safety Report 10802225 (Version 3)
Quarter: 2015Q1

REPORT INFORMATION
  Report Type: Spontaneous
  Country: ES (occurrence: ES)
  Receive Date: 20150217
  Receipt Date: 20150306
  Transmission Date: 20150721
  Serious: Yes (Death, Other)
  Sender: FDA-Public Use
  Company Number: ES-CELGENE-ESP-2015021618

PATIENT
  Age: 48 Year
  Sex: Female

DRUGS (2)
  1. GEMCITABINE [Suspect]
     Active Substance: GEMCITABINE\GEMCITABINE HYDROCHLORIDE
     Indication: PANCREATIC CARCINOMA METASTATIC
     Route: 041
     Dates: start: 201210, end: 201303
  2. ABRAXANE [Suspect]
     Active Substance: PACLITAXEL
     Indication: PANCREATIC CARCINOMA METASTATIC
     Route: 041
     Dates: start: 201210, end: 201403

REACTIONS (5)
  - Neutropenia [Recovered/Resolved]
  - Alopecia [Not Recovered/Not Resolved]
  - Pancreatic carcinoma metastatic [Fatal]
  - Neuropathy peripheral [Recovered/Resolved]
  - Platelet count decreased [Recovered/Resolved]

NARRATIVE: CASE EVENT DATE: 201403
